FAERS Safety Report 16160441 (Version 1)
Quarter: 2019Q2

REPORT INFORMATION
  Report Type: Spontaneous
  Country: DE (occurrence: DE)
  Receive Date: 20190405
  Receipt Date: 20190405
  Transmission Date: 20190711
  Serious: Yes (Death, Hospitalization, Other)
  Sender: FDA-Public Use
  Company Number: DE-SUN PHARMACEUTICAL INDUSTRIES LTD-2019RR-203431

PATIENT
  Age: 74 Year
  Sex: Male

DRUGS (28)
  1. OXALIPLATIN. [Suspect]
     Active Substance: OXALIPLATIN
     Indication: COLORECTAL CANCER
     Dosage: 14/OCT/2015, 28/OCT/2015, 18/NOV/2015, 02/DEC/2015, 21/DEC/2015, HE RECEIVED SUBSEQUENT DOSES OF OXA
     Route: 042
     Dates: start: 20150923
  2. BEVACIZUMAB. [Suspect]
     Active Substance: BEVACIZUMAB
     Dosage: 425 MILLIGRAM, UNK
     Route: 042
     Dates: start: 20160111, end: 20160111
  3. 5-FLUOROURACIL [Suspect]
     Active Substance: FLUOROURACIL
     Indication: COLORECTAL CANCER
     Dosage: 650 MILLIGRAM, UNK
     Route: 040
     Dates: start: 20150923, end: 20150923
  4. NADIXA [Concomitant]
     Indication: ERYTHEMA
     Dosage: 99 MILLILITER, UNK
     Route: 065
     Dates: start: 20151103, end: 20151221
  5. FOLINIC ACID [Concomitant]
     Active Substance: LEUCOVORIN
     Indication: COLORECTAL CANCER
     Dosage: 400 MG ONLY ON 23-SEP-2015
     Route: 042
     Dates: start: 20151014, end: 20151018
  6. 5-FLUOROURACIL [Suspect]
     Active Substance: FLUOROURACIL
     Dosage: 4000 MILLIGRAM, UNK
     Route: 041
     Dates: start: 20150923, end: 20151120
  7. 5-FLUOROURACIL [Suspect]
     Active Substance: FLUOROURACIL
     Dosage: 675 MILLIGRAM, UNK
     Route: 040
     Dates: start: 20151014, end: 20151118
  8. BEVACIZUMAB. [Suspect]
     Active Substance: BEVACIZUMAB
     Indication: COLORECTAL CANCER
     Dosage: 450 MILLIGRAM, UNK
     Route: 042
     Dates: start: 20151118, end: 20151118
  9. 5-FLUOROURACIL [Suspect]
     Active Substance: FLUOROURACIL
     Dosage: 3900 MILLIGRAM, UNK
     Route: 041
     Dates: start: 20151202, end: 20151223
  10. 5-FLUOROURACIL [Suspect]
     Active Substance: FLUOROURACIL
     Dosage: 3400 MILLIGRAM, UNK
     Route: 041
     Dates: start: 20160111, end: 20160113
  11. METOPROLOL. [Concomitant]
     Active Substance: METOPROLOL
     Indication: PRODUCT USED FOR UNKNOWN INDICATION
     Dosage: 50 MILLIGRAM, DAILY
     Route: 048
     Dates: start: 20160129, end: 20160203
  12. FOLINIC ACID [Concomitant]
     Active Substance: LEUCOVORIN
     Dosage: 400-670 MG
     Route: 042
     Dates: start: 20150923, end: 20160111
  13. ASPIRIN. [Concomitant]
     Active Substance: ASPIRIN
     Indication: CEREBROVASCULAR DISORDER
     Dosage: 100 MILLIGRAM, DAILY
     Route: 048
     Dates: start: 2009, end: 20160313
  14. CLONIDIN [Concomitant]
     Active Substance: CLONIDINE
     Indication: HYPERTENSION
     Dosage: 0.15 MILLIGRAM, UNK
     Route: 042
     Dates: start: 20160229
  15. CLEXANE [Concomitant]
     Active Substance: ENOXAPARIN SODIUM
     Indication: THROMBOSIS
     Dosage: 0.2 MILLILITER, DAILY
     Route: 058
     Dates: start: 20160203, end: 20160213
  16. OXALIPLATIN. [Suspect]
     Active Substance: OXALIPLATIN
     Dosage: 120 MILLIGRAM, UNK
     Route: 042
     Dates: start: 20160111, end: 20160111
  17. 5-FLUOROURACIL [Suspect]
     Active Substance: FLUOROURACIL
     Dosage: 675 MILLIGRAM, UNK
     Route: 040
     Dates: start: 20151028, end: 20151028
  18. 5-FLUOROURACIL [Suspect]
     Active Substance: FLUOROURACIL
     Dosage: 650 MILLIGRAM, UNK
     Route: 040
     Dates: start: 20151202, end: 20151221
  19. MCP [Concomitant]
     Active Substance: METOCLOPRAMIDE HYDROCHLORIDE
     Indication: NAUSEA
     Dosage: 10 MILLIGRAM, UNK
     Route: 048
     Dates: start: 20150916, end: 201601
  20. PANITUMUMAB [Concomitant]
     Active Substance: PANITUMUMAB
     Indication: COLORECTAL CANCER
     Dosage: ONCE
     Route: 042
     Dates: start: 20151028, end: 20151028
  21. DERMATOP [Concomitant]
     Active Substance: PREDNICARBATE
     Indication: ERYTHEMA
     Dosage: 99 MILLILITER, UNK
     Route: 065
     Dates: start: 20151103, end: 20151221
  22. 5-FLUOROURACIL [Suspect]
     Active Substance: FLUOROURACIL
     Dosage: 675 MILLIGRAM, UNK
     Route: 040
     Dates: start: 20151118, end: 20151118
  23. 5-FLUOROURACIL [Suspect]
     Active Substance: FLUOROURACIL
     Dosage: 575 MILLIGRAM, UNK
     Route: 040
     Dates: start: 20160111, end: 20160111
  24. TAVOR (LORAZEPAM) [Concomitant]
     Active Substance: LORAZEPAM
     Indication: SURGERY
     Dosage: 1 MILLIGRAM, UNK
     Route: 048
     Dates: start: 20160228, end: 20160316
  25. LOPERAMID [Concomitant]
     Active Substance: LOPERAMIDE
     Indication: DIARRHOEA
     Dosage: 99 MILLIGRAM, UNK
     Route: 048
     Dates: start: 20160111
  26. ATOSIL (PROMETHAZINE HYDROCHLORIDE) [Concomitant]
     Active Substance: PROMETHAZINE HYDROCHLORIDE
     Indication: HYPERTENSION
     Dosage: 25 MILLIGRAM, UNK
     Route: 042
     Dates: start: 20160302, end: 20160320
  27. CIPROBAY [Concomitant]
     Active Substance: CIPROFLOXACIN
     Indication: URINARY TRACT INFECTION
     Dosage: 500 MILLIGRAM, DAILY
     Route: 048
     Dates: start: 20160209, end: 20160221
  28. PANTOZOL [Concomitant]
     Active Substance: PANTOPRAZOLE SODIUM
     Indication: PRODUCT USED FOR UNKNOWN INDICATION
     Dosage: 40 MILLIGRAM, UNK
     Route: 048
     Dates: start: 20150923, end: 20160316

REACTIONS (14)
  - Haemoglobin decreased [Not Recovered/Not Resolved]
  - Ascites [Not Recovered/Not Resolved]
  - Abscess [Fatal]
  - Wound infection [Not Recovered/Not Resolved]
  - Haemorrhage [Unknown]
  - Faecaloma [Recovered/Resolved]
  - Faecaloma [Recovered/Resolved]
  - Subileus [Recovered/Resolved]
  - Wound haemorrhage [Not Recovered/Not Resolved]
  - Pyrexia [Not Recovered/Not Resolved]
  - Anaemia [Unknown]
  - Delirium [Unknown]
  - Hypertension [Not Recovered/Not Resolved]
  - Proctalgia [Not Recovered/Not Resolved]

NARRATIVE: CASE EVENT DATE: 20151130
